FAERS Safety Report 23627092 (Version 2)
Quarter: 2024Q3

REPORT INFORMATION
  Report Type: Report from Study
  Country: US (occurrence: US)
  Receive Date: 20240313
  Receipt Date: 20240910
  Transmission Date: 20241016
  Serious: No
  Sender: ALEXION PHARMACEUTICALS
  Company Number: US-ALXN-202403USA000555US

PATIENT
  Sex: Female

DRUGS (1)
  1. STRENSIQ [Suspect]
     Active Substance: ASFOTASE ALFA
     Indication: Product used for unknown indication
     Dosage: UNK
     Route: 065

REACTIONS (8)
  - Injection site rash [Unknown]
  - Pain in extremity [Unknown]
  - Bone pain [Unknown]
  - Dental caries [Unknown]
  - Product dose omission issue [Unknown]
  - Abnormal behaviour [Unknown]
  - Pain [Unknown]
  - Tooth agenesis [Unknown]
